FAERS Safety Report 4805596-3 (Version None)
Quarter: 2005Q4

REPORT INFORMATION
  Report Type: 
  Country: None (occurrence: None)
  Receive Date: 20051018
  Receipt Date: 20051012
  Transmission Date: 20060501
  Serious: Yes (Hospitalization)
  Sender: FDA-Public Use
  Company Number: 2005ST000105

PATIENT
  Sex: Male

DRUGS (1)
  1. ZEGERID [Suspect]
     Dosage: 20 MG; PO
     Route: 048
     Dates: start: 20050701, end: 20050801

REACTIONS (1)
  - CARDIAC FAILURE [None]
